FAERS Safety Report 8199462-6 (Version None)
Quarter: 2012Q1

REPORT INFORMATION
  Report Type: 
  Country: None (occurrence: None)
  Receive Date: 20120309
  Receipt Date: 20120229
  Transmission Date: 20120608
  Serious: Yes (Hospitalization, Other)
  Sender: FDA-Public Use
  Company Number: US-ABBOTT-12P-163-0910444-00

PATIENT
  Sex: Male
  Weight: 99.88 kg

DRUGS (3)
  1. HUMIRA [Suspect]
     Indication: CROHN'S DISEASE
     Route: 058
     Dates: start: 20091101
  2. HUMIRA [Suspect]
  3. IMURAN [Concomitant]
     Indication: CROHN'S DISEASE

REACTIONS (2)
  - IMPAIRED HEALING [None]
  - FISTULA [None]
